FAERS Safety Report 6486167-2 (Version None)
Quarter: 2009Q4

REPORT INFORMATION
  Report Type: 
  Country: None (occurrence: None)
  Receive Date: 20091207
  Receipt Date: 20091124
  Transmission Date: 20100525
  Serious: Yes (Hospitalization)
  Sender: FDA-Public Use
  Company Number: 2009AP004760

PATIENT
  Sex: Female

DRUGS (1)
  1. TERAZOSIN HCL [Suspect]
     Indication: NEUROPATHY PERIPHERAL
     Dosage: PO
     Route: 048

REACTIONS (2)
  - HYPOAESTHESIA [None]
  - HYPOAESTHESIA ORAL [None]
